FAERS Safety Report 13438981 (Version 1)
Quarter: 2017Q2

REPORT INFORMATION
  Report Type: Spontaneous
  Country: US (occurrence: US)
  Receive Date: 20170413
  Receipt Date: 20170413
  Transmission Date: 20170830
  Serious: Yes (Hospitalization)
  Sender: FDA-Public Use
  Company Number: US-ROCHE-1203825

PATIENT
  Age: 10 Year
  Sex: Female

DRUGS (1)
  1. XENICAL [Suspect]
     Active Substance: ORLISTAT
     Indication: HYPERCHYLOMICRONAEMIA
     Dosage: BEFORE MEALS
     Route: 065

REACTIONS (2)
  - Abdominal pain [Unknown]
  - Lipids abnormal [Unknown]
